FAERS Safety Report 18952582 (Version 1)
Quarter: 2021Q1

REPORT INFORMATION
  Report Type: Report from Study
  Country: KR (occurrence: KR)
  Receive Date: 20210301
  Receipt Date: 20210301
  Transmission Date: 20210420
  Serious: Yes (Other)
  Sender: FDA-Public Use
  Company Number: KR-VIFOR (INTERNATIONAL) INC.-VIT-2021-01953

PATIENT
  Age: 68 Year
  Sex: Male
  Weight: 83.6 kg

DRUGS (16)
  1. VELPHORO [Suspect]
     Active Substance: SUCROFERRIC OXYHYDROXIDE
     Indication: CHRONIC KIDNEY DISEASE
     Route: 048
     Dates: start: 20201214, end: 20201227
  2. SILENOR [Concomitant]
     Active Substance: DOXEPIN HYDROCHLORIDE
     Indication: INSOMNIA
     Route: 048
     Dates: start: 20180115
  3. DUOLAX [Concomitant]
     Indication: PROPHYLAXIS
     Route: 048
     Dates: start: 20180511
  4. NOIROMIN [Concomitant]
     Indication: PROPHYLAXIS
     Route: 048
     Dates: start: 20171124
  5. CARDURA XL [Concomitant]
     Active Substance: DOXAZOSIN MESYLATE
     Indication: HYPERTENSION
     Route: 048
     Dates: start: 20180312
  6. NEURONTIN [Concomitant]
     Active Substance: GABAPENTIN
     Indication: END STAGE RENAL DISEASE
     Route: 048
     Dates: start: 20191223
  7. DONGKWANG MINOXIDIL [Concomitant]
     Indication: HYPERTENSION
     Route: 048
     Dates: start: 20180504
  8. ZEMIGLO [Concomitant]
     Indication: DIABETES MELLITUS
     Route: 048
     Dates: start: 20170222
  9. STILNOX CR [Concomitant]
     Active Substance: ZOLPIDEM TARTRATE
     Indication: INSOMNIA
     Route: 048
     Dates: start: 20171208
  10. BERAST [Concomitant]
     Indication: PROPHYLAXIS
     Route: 048
     Dates: start: 20200406
  11. HYDRALAZINE HCL SAMJIN [Concomitant]
     Indication: HYPERTENSION
     Route: 048
     Dates: start: 20201026
  12. DILATREND [Concomitant]
     Active Substance: CARVEDILOL
     Indication: HYPERTENSION
     Route: 048
     Dates: start: 20180312
  13. ADALAT [Concomitant]
     Active Substance: NIFEDIPINE
     Indication: HYPERTENSION
     Route: 048
     Dates: start: 20190703
  14. LEVACALM [Concomitant]
     Indication: HYPERTENSION
     Dosage: 20/160MG
     Route: 048
     Dates: start: 20201214
  15. FURIX [Concomitant]
     Indication: END STAGE RENAL DISEASE
     Route: 048
     Dates: start: 20190225
  16. RENALMIN [Concomitant]
     Indication: END STAGE RENAL DISEASE
     Route: 048
     Dates: start: 20170225

REACTIONS (1)
  - Melaena [Recovered/Resolved]

NARRATIVE: CASE EVENT DATE: 20201223
